FAERS Safety Report 12546840 (Version 3)
Quarter: 2017Q2

REPORT INFORMATION
  Report Type: Spontaneous
  Country: SE (occurrence: SE)
  Receive Date: 20160711
  Receipt Date: 20170414
  Transmission Date: 20170830
  Serious: Yes (Life-Threatening, Hospitalization, Other)
  Sender: FDA-Public Use
  Company Number: SE-ELI_LILLY_AND_COMPANY-SE201607003115

PATIENT
  Age: 57 Year
  Sex: Female
  Weight: 84 kg

DRUGS (1)
  1. ZYPADHERA [Suspect]
     Active Substance: OLANZAPINE PAMOATE
     Indication: SCHIZOPHRENIA
     Dosage: 405 MG, MONTHLY (1/M)

REACTIONS (19)
  - Mydriasis [Recovering/Resolving]
  - Drug level above therapeutic [Recovering/Resolving]
  - Confusional state [Recovering/Resolving]
  - Anxiety [Recovering/Resolving]
  - Tachycardia [Recovering/Resolving]
  - Paranoia [Unknown]
  - Anticholinergic syndrome [Recovering/Resolving]
  - Pneumonia aspiration [Unknown]
  - Agitation [Recovering/Resolving]
  - Blood creatine phosphokinase increased [Recovering/Resolving]
  - Post-injection delirium sedation syndrome [Recovering/Resolving]
  - Myoglobin blood increased [Recovering/Resolving]
  - Consciousness fluctuating [Recovering/Resolving]
  - Dysarthria [Recovering/Resolving]
  - Vulval cancer [Unknown]
  - Akathisia [Recovering/Resolving]
  - Blood pressure increased [Unknown]
  - Somnolence [Recovering/Resolving]
  - Delirium [Unknown]
